FAERS Safety Report 26133151 (Version 2)
Quarter: 2025Q4

REPORT INFORMATION
  Report Type: Spontaneous
  Country: BR (occurrence: BR)
  Receive Date: 20251209
  Receipt Date: 20251222
  Transmission Date: 20260118
  Serious: No
  Sender: AMGEN
  Company Number: BR-AMGEN-BRASP2025239343

PATIENT
  Sex: Female

DRUGS (1)
  1. GRANULOKINE [Suspect]
     Active Substance: FILGRASTIM
     Indication: Product used for unknown indication
     Dosage: UNK
     Route: 065

REACTIONS (6)
  - Product administration error [Unknown]
  - Product storage error [Unknown]
  - Device issue [Unknown]
  - Peripheral swelling [Unknown]
  - Limb discomfort [Unknown]
  - Incorrect dose administered by device [Unknown]

NARRATIVE: CASE EVENT DATE: 20251105
